FAERS Safety Report 17129188 (Version 1)
Quarter: 2019Q4

REPORT INFORMATION
  Report Type: Spontaneous
  Country: JP (occurrence: JP)
  Receive Date: 20191209
  Receipt Date: 20191209
  Transmission Date: 20200122
  Serious: Yes (Hospitalization, Other)
  Sender: FDA-Public Use
  Company Number: JP-BAYER-2019-152029

PATIENT
  Age: 57 Year
  Sex: Female
  Weight: 65 kg

DRUGS (2)
  1. GADOVIST [Suspect]
     Active Substance: GADOBUTROL
     Indication: MAGNETIC RESONANCE IMAGING
     Dosage: 6.3ML, ONCE
     Route: 042
     Dates: start: 20190814, end: 20190814
  2. GADOVIST [Suspect]
     Active Substance: GADOBUTROL
     Indication: LUNG NEOPLASM MALIGNANT

REACTIONS (9)
  - Discomfort [Recovered/Resolved]
  - Dyspnoea [Recovered/Resolved]
  - General physical health deterioration [Recovered/Resolved]
  - Blood lactic acid increased [Recovered/Resolved]
  - Nephrolithiasis [None]
  - Pleural effusion [Recovered/Resolved]
  - Anaphylactic shock [Recovered/Resolved]
  - Chest discomfort [Recovered/Resolved]
  - Pulmonary oedema [Recovered/Resolved]

NARRATIVE: CASE EVENT DATE: 20190814
